FAERS Safety Report 15000926 (Version 1)
Quarter: 2018Q2

REPORT INFORMATION
  Report Type: Spontaneous
  Country: US (occurrence: US)
  Receive Date: 20180523
  Receipt Date: 20180523
  Transmission Date: 20180711
  Serious: Yes (Disabling)
  Sender: FDA-Public Use
  Company Number: None

PATIENT
  Age: 56 Year
  Sex: Male
  Weight: 72.9 kg

DRUGS (2)
  1. ARMOUR THYROID [Concomitant]
     Active Substance: THYROID, PORCINE
  2. ELIQUIS [Suspect]
     Active Substance: APIXABAN
     Indication: PULMONARY EMBOLISM
     Dosage: ?          QUANTITY:60 TABLET(S);?
     Route: 048

REACTIONS (4)
  - Fatigue [None]
  - Muscular weakness [None]
  - Anxiety [None]
  - Depression [None]

NARRATIVE: CASE EVENT DATE: 20180201
